FAERS Safety Report 13782345 (Version 1)
Quarter: 2017Q3

REPORT INFORMATION
  Report Type: Spontaneous
  Country: US (occurrence: US)
  Receive Date: 20170724
  Receipt Date: 20170724
  Transmission Date: 20171127
  Serious: Yes (Other)
  Sender: FDA-Public Use
  Company Number: None

PATIENT
  Age: 28 Year
  Sex: Female
  Weight: 83.7 kg

DRUGS (2)
  1. MIRENA [Concomitant]
     Active Substance: LEVONORGESTREL
  2. LEVOFLOXACIN 750MG TABLETS [Suspect]
     Active Substance: LEVOFLOXACIN
     Indication: PNEUMONIA
     Dosage: ?          OTHER STRENGTH:MG;QUANTITY:5 TABLET(S);?
     Route: 048
     Dates: start: 20170717, end: 20170718

REACTIONS (8)
  - Dysstasia [None]
  - Loss of personal independence in daily activities [None]
  - Head injury [None]
  - Pain [None]
  - Loss of consciousness [None]
  - Gait disturbance [None]
  - Back disorder [None]
  - Fall [None]

NARRATIVE: CASE EVENT DATE: 20170718
